FAERS Safety Report 12786709 (Version 1)
Quarter: 2016Q3

REPORT INFORMATION
  Report Type: Spontaneous
  Country: US (occurrence: US)
  Receive Date: 20160927
  Receipt Date: 20160927
  Transmission Date: 20161109
  Serious: Yes (Other)
  Sender: FDA-Public Use
  Company Number: US-SAOL THERAPEUTICS-2016SAO00708

PATIENT
  Sex: Female

DRUGS (3)
  1. LIORESAL [Suspect]
     Active Substance: BACLOFEN
     Indication: CEREBROVASCULAR ACCIDENT
     Dosage: 100 ?G\DAY
  2. BACLOFEN. [Suspect]
     Active Substance: BACLOFEN
     Route: 048
  3. LIORESAL [Suspect]
     Active Substance: BACLOFEN
     Indication: MUSCLE SPASTICITY
     Dosage: 250 ?G, \DAY
     Route: 037

REACTIONS (3)
  - Irritability [Not Recovered/Not Resolved]
  - Drug withdrawal syndrome [Not Recovered/Not Resolved]
  - Immunisation reaction [Not Recovered/Not Resolved]
